FAERS Safety Report 5555756-1 (Version None)
Quarter: 2007Q4

REPORT INFORMATION
  Report Type: 
  Country: None (occurrence: None)
  Receive Date: 20071213
  Receipt Date: 20071204
  Transmission Date: 20080405
  Serious: Yes (Other)
  Sender: FDA-Public Use
  Company Number: US-PFIZER INC-2007102787

PATIENT
  Sex: Female

DRUGS (3)
  1. MICRONASE TAB [Suspect]
     Indication: BLOOD GLUCOSE INCREASED
  2. GLIBENCLAMIDE TABLET [Suspect]
     Indication: BLOOD GLUCOSE INCREASED
  3. SITAGLIPTIN [Suspect]

REACTIONS (18)
  - ANGIOPATHY [None]
  - BLOOD GLUCOSE INCREASED [None]
  - BLOOD PRESSURE INCREASED [None]
  - BLOOD TRIGLYCERIDES INCREASED [None]
  - CATARACT [None]
  - CYST [None]
  - EMOTIONAL DISORDER [None]
  - EMOTIONAL DISTRESS [None]
  - EYE DISORDER [None]
  - EYE HAEMORRHAGE [None]
  - EYE LASER SURGERY [None]
  - GLUCOSE URINE PRESENT [None]
  - INJECTION [None]
  - RETINAL DISORDER [None]
  - RETINAL VASCULAR THROMBOSIS [None]
  - VASCULAR INJURY [None]
  - VISUAL DISTURBANCE [None]
  - WEIGHT DECREASED [None]
